FAERS Safety Report 5703278-7 (Version None)
Quarter: 2008Q2

REPORT INFORMATION
  Report Type: 
  Country: None (occurrence: None)
  Receive Date: 20080411
  Receipt Date: 20080401
  Transmission Date: 20081010
  Serious: Yes (Other)
  Sender: FDA-Public Use
  Company Number: US-PFIZER INC-2008014154

PATIENT
  Sex: Male
  Weight: 93.181 kg

DRUGS (11)
  1. CHANTIX [Suspect]
     Indication: SMOKING CESSATION THERAPY
     Dates: start: 20080131, end: 20080209
  2. METFORMIN HCL [Concomitant]
  3. ENALAPRIL MALEATE [Concomitant]
     Dosage: DAILY DOSE:1MG
     Route: 048
  4. LANTUS [Concomitant]
     Dosage: TEXT:16-18 UNITS DAILY AS DIRECTED
     Route: 058
  5. INSULIN [Concomitant]
  6. ACETYLSALICYLIC ACID SRT [Concomitant]
     Dosage: DAILY DOSE:81MG
  7. DICLOFENAC SODIUM [Concomitant]
     Dosage: DAILY DOSE:50MG-TEXT:50MG TWICE DAILY AS NEEDED
  8. INDOMETHACIN [Concomitant]
     Dosage: DAILY DOSE:25MG-TEXT:1-2 CAPSULES TWICE DAILY AS NEEDED
     Route: 048
  9. METHOCARBAMOL [Concomitant]
     Route: 048
  10. NAPROXEN [Concomitant]
     Route: 048
  11. NYSTATIN [Concomitant]
     Dosage: TEXT:APPLY TWO TO THREE TIMES DAILY
     Route: 061

REACTIONS (2)
  - BLOOD GLUCOSE INCREASED [None]
  - FEELING ABNORMAL [None]
